FAERS Safety Report 7134054-9 (Version None)
Quarter: 2010Q4

REPORT INFORMATION
  Report Type: 
  Country: None (occurrence: None)
  Receive Date: 20101203
  Receipt Date: 20101124
  Transmission Date: 20110411
  Serious: No
  Sender: FDA-Public Use
  Company Number: US-JNJFOC-20101108173

PATIENT
  Sex: Female

DRUGS (6)
  1. DURAGESIC-100 [Suspect]
     Indication: PAIN
     Route: 062
  2. COUMADIN [Concomitant]
     Indication: THROMBOSIS
     Route: 048
  3. LOTENSIN [Concomitant]
     Indication: BLOOD PRESSURE
     Dosage: 20-25MG/ ONCE PER DAY
     Route: 048
  4. METFORMIN [Concomitant]
     Indication: DIABETES MELLITUS
     Dosage: 20-25MG/ ONCE PER DAY
     Route: 048
  5. LASIX [Concomitant]
     Indication: FLUID RETENTION
     Dosage: 20-25MG/ ONCE PER DAY
     Route: 048
  6. K-DUR [Concomitant]
     Indication: ELECTROLYTE SUBSTITUTION THERAPY
     Dosage: 20-25MG/ ONCE PER DAY
     Route: 048

REACTIONS (1)
  - EXPIRED DRUG ADMINISTERED [None]
